FAERS Safety Report 24316110 (Version 2)
Quarter: 2024Q4

REPORT INFORMATION
  Report Type: Report from Study
  Country: US (occurrence: US)
  Receive Date: 20240913
  Receipt Date: 20241025
  Transmission Date: 20250115
  Serious: Yes (Death)
  Sender: EMD SERONO INC
  Company Number: US-Merck Healthcare KGaA-2024048015

PATIENT
  Age: 54 Year
  Sex: Female

DRUGS (2)
  1. CLADRIBINE [Suspect]
     Active Substance: CLADRIBINE
     Indication: Relapsing multiple sclerosis
     Dosage: YEAR ONE WEEK ONE THERAPY
     Dates: start: 20211026, end: 20211031
  2. CLADRIBINE [Suspect]
     Active Substance: CLADRIBINE
     Dosage: YEAR ONE WEEK TWO THERAPY
     Dates: start: 20211122, end: 20211127

REACTIONS (2)
  - Deep vein thrombosis [Fatal]
  - Pulmonary embolism [Fatal]

NARRATIVE: CASE EVENT DATE: 20240831
